FAERS Safety Report 7478344-9 (Version None)
Quarter: 2011Q2

REPORT INFORMATION
  Report Type: 
  Country: None (occurrence: None)
  Receive Date: 20110513
  Receipt Date: 20110505
  Transmission Date: 20111010
  Serious: Yes (Hospitalization)
  Sender: FDA-Public Use
  Company Number: FR-JNJFOC-20110310806

PATIENT
  Sex: Female
  Weight: 51.5 kg

DRUGS (4)
  1. NORVIR [Suspect]
     Indication: HIV INFECTION
     Route: 048
     Dates: start: 20100501, end: 20110401
  2. ATRIPLA [Concomitant]
     Indication: HIV INFECTION
     Route: 065
  3. PREZISTA [Suspect]
     Indication: HIV INFECTION
     Route: 048
     Dates: start: 20100501, end: 20110401
  4. TRUVADA [Concomitant]
     Indication: HIV INFECTION

REACTIONS (5)
  - NEPHROLITHIASIS [None]
  - RENAL FAILURE [None]
  - MICROLITHIASIS [None]
  - RENAL TUBULAR ACIDOSIS [None]
  - GLOMERULAR FILTRATION RATE ABNORMAL [None]
